FAERS Safety Report 6072734-7 (Version None)
Quarter: 2009Q1

REPORT INFORMATION
  Report Type: 
  Country: None (occurrence: None)
  Receive Date: 20090210
  Receipt Date: 20090203
  Transmission Date: 20090719
  Serious: Yes (Hospitalization)
  Sender: FDA-Public Use
  Company Number: US-B.I. PHARMACEUTICALS,INC./RIDGEFIELD-2009-BP-01353BP

PATIENT
  Sex: Female

DRUGS (5)
  1. SPIRIVA [Suspect]
     Indication: CHRONIC OBSTRUCTIVE PULMONARY DISEASE
     Dosage: 18MCG
     Route: 055
     Dates: start: 20070101
  2. TRIAMTERENE [Concomitant]
     Indication: HYPERTENSION
     Dosage: 37.5MG
     Route: 048
     Dates: start: 20040101
  3. LEVOTHYROXINE SODIUM [Concomitant]
     Indication: HYPOTHYROIDISM
     Dosage: 50MG
     Route: 048
     Dates: start: 20060101
  4. METOPROLOL TARTRATE [Concomitant]
     Indication: HEART RATE IRREGULAR
     Dosage: 50MG
     Route: 048
     Dates: start: 20040101
  5. METOPROLOL TARTRATE [Concomitant]
     Indication: HYPERTENSION

REACTIONS (2)
  - DYSPHAGIA [None]
  - THROAT TIGHTNESS [None]
